FAERS Safety Report 7746921-3 (Version None)
Quarter: 2011Q3

REPORT INFORMATION
  Report Type: 
  Country: None (occurrence: None)
  Receive Date: 20110913
  Receipt Date: 20110830
  Transmission Date: 20111222
  Serious: Yes (Other)
  Sender: FDA-Public Use
  Company Number: PHBS2006JP16020

PATIENT
  Sex: Male
  Weight: 55 kg

DRUGS (3)
  1. ISONIAZID [Concomitant]
     Indication: PROPHYLAXIS
     Dosage: UNK UKN, UNK
     Route: 048
  2. NEORAL [Suspect]
     Dosage: 2.5 MG, UNK
     Route: 048
     Dates: start: 20080101
  3. NEORAL [Suspect]
     Indication: PSORIASIS
     Dosage: 1.5 MG/KG, UNK
     Route: 048
     Dates: start: 20040901, end: 20060620

REACTIONS (22)
  - PSORIASIS [None]
  - SKIN DISORDER [None]
  - ASPARTATE AMINOTRANSFERASE INCREASED [None]
  - IRIDOCYCLITIS [None]
  - VISION BLURRED [None]
  - EYE INFLAMMATION [None]
  - RASH PUSTULAR [None]
  - UPPER RESPIRATORY TRACT INFLAMMATION [None]
  - RASH [None]
  - HEPATIC FUNCTION ABNORMAL [None]
  - ALANINE AMINOTRANSFERASE INCREASED [None]
  - ANTINUCLEAR ANTIBODY INCREASED [None]
  - SICK SINUS SYNDROME [None]
  - RED BLOOD CELL SEDIMENTATION RATE INCREASED [None]
  - CATARACT [None]
  - IRIS ADHESIONS [None]
  - VISUAL ACUITY REDUCED [None]
  - C-REACTIVE PROTEIN INCREASED [None]
  - ARTHRALGIA [None]
  - UVEITIS [None]
  - INTRAOCULAR PRESSURE INCREASED [None]
  - UPPER RESPIRATORY TRACT INFECTION [None]
